FAERS Safety Report 13355504 (Version 1)
Quarter: 2017Q1

REPORT INFORMATION
  Report Type: Spontaneous
  Country: US (occurrence: US)
  Receive Date: 20170321
  Receipt Date: 20170321
  Transmission Date: 20170429
  Serious: Yes (Life-Threatening, Disabling, Other)
  Sender: FDA-Public Use
  Company Number: None

PATIENT
  Age: 38 Year
  Sex: Female
  Weight: 71.73 kg

DRUGS (10)
  1. PRAZOSIN [Suspect]
     Active Substance: PRAZOSIN
  2. DEPAKOTE [Suspect]
     Active Substance: DIVALPROEX SODIUM
     Indication: PRODUCT USED FOR UNKNOWN INDICATION
     Dates: start: 20161212
  3. REMERON [Suspect]
     Active Substance: MIRTAZAPINE
  4. CYMBALTA [Suspect]
     Active Substance: DULOXETINE HYDROCHLORIDE
  5. ACYCLOVIR. [Suspect]
     Active Substance: ACYCLOVIR
  6. NAPROXEN. [Concomitant]
     Active Substance: NAPROXEN
  7. MULTIVITAMIN [Concomitant]
     Active Substance: VITAMINS
  8. LITHIUM. [Suspect]
     Active Substance: LITHIUM
  9. HALDOL [Suspect]
     Active Substance: HALOPERIDOL
  10. PRILOSEC [Suspect]
     Active Substance: OMEPRAZOLE MAGNESIUM

REACTIONS (2)
  - Haematemesis [None]
  - Rectal haemorrhage [None]
